FAERS Safety Report 15850501 (Version 3)
Quarter: 2019Q2

REPORT INFORMATION
  Report Type: Spontaneous
  Country: US (occurrence: US)
  Receive Date: 20190121
  Receipt Date: 20190507
  Transmission Date: 20190711
  Serious: No
  Sender: FDA-Public Use
  Company Number: US-PFIZER INC-2019024057

PATIENT
  Age: 27 Year
  Sex: Female

DRUGS (5)
  1. EUCRISA [Suspect]
     Active Substance: CRISABOROLE
     Indication: DERMATITIS ATOPIC
     Dosage: 60 G, 2X/DAY (60G BOTTLE)
     Dates: start: 20180609, end: 20181120
  2. EUCRISA [Suspect]
     Active Substance: CRISABOROLE
     Indication: ECZEMA
     Dosage: UNK, DAILY
     Route: 061
  3. EUCRISA [Suspect]
     Active Substance: CRISABOROLE
     Dosage: 60 G, 2X/DAY (60G BOTTLE)
  4. CETIRIZINE [Suspect]
     Active Substance: CETIRIZINE HYDROCHLORIDE
     Indication: ECZEMA
     Dosage: 25 MG, 2X/DAY
     Dates: start: 20180609, end: 20181120
  5. CETIRIZINE [Suspect]
     Active Substance: CETIRIZINE HYDROCHLORIDE
     Indication: DERMATITIS ATOPIC
     Dosage: 25 MG, 2X/DAY

REACTIONS (2)
  - Condition aggravated [Unknown]
  - Application site discolouration [Unknown]
